FAERS Safety Report 11355316 (Version 1)
Quarter: 2015Q3

REPORT INFORMATION
  Report Type: Spontaneous
  Country: IT (occurrence: IT)
  Receive Date: 20150807
  Receipt Date: 20150807
  Transmission Date: 20151125
  Serious: Yes (Hospitalization)
  Sender: FDA-Public Use
  Company Number: IT-AUROBINDO-AUR-APL-2015-06983

PATIENT
  Age: 56 Year
  Sex: Male

DRUGS (3)
  1. ROTIGOTINE [Suspect]
     Active Substance: ROTIGOTINE
     Indication: PRODUCT USED FOR UNKNOWN INDICATION
     Route: 065
  2. PRAMIPEXOLE. [Suspect]
     Active Substance: PRAMIPEXOLE
     Indication: PRODUCT USED FOR UNKNOWN INDICATION
     Dosage: 2.1 MG, DAILY
     Route: 065
  3. ROPINIROLE. [Suspect]
     Active Substance: ROPINIROLE
     Indication: PRODUCT USED FOR UNKNOWN INDICATION
     Route: 065

REACTIONS (10)
  - Depression [Recovered/Resolved]
  - Dizziness postural [Recovered/Resolved]
  - Posture abnormal [Recovered/Resolved]
  - Head discomfort [Recovered/Resolved]
  - Withdrawal syndrome [Recovered/Resolved]
  - Necrotising myositis [Recovered/Resolved]
  - Anxiety [Recovered/Resolved]
  - Dropped head syndrome [Recovered/Resolved]
  - Fatigue [Recovered/Resolved]
  - Blood creatine phosphokinase increased [Recovered/Resolved]
